FAERS Safety Report 10439824 (Version 2)
Quarter: 2014Q3

REPORT INFORMATION
  Report Type: Spontaneous
  Country: US (occurrence: US)
  Receive Date: 20140908
  Receipt Date: 20140908
  Transmission Date: 20150326
  Serious: No
  Sender: FDA-Public Use
  Company Number: US-BRISTOL-MYERS SQUIBB COMPANY-20030870

PATIENT
  Age: 43 Year
  Sex: Female
  Weight: 76.19 kg

DRUGS (1)
  1. ABILIFY [Suspect]
     Active Substance: ARIPIPRAZOLE
     Indication: BIPOLAR I DISORDER
     Dosage: 1DF:CUTTING 30 MG TABS IN HALF.?ABILIFY FOR 1-1.5 YEARS

REACTIONS (1)
  - Wrong technique in drug usage process [Unknown]
